FAERS Safety Report 18938053 (Version 1)
Quarter: 2021Q1

REPORT INFORMATION
  Report Type: Spontaneous
  Country: CA (occurrence: CA)
  Receive Date: 20210224
  Receipt Date: 20210224
  Transmission Date: 20210420
  Serious: Yes (Hospitalization)
  Sender: FDA-Public Use
  Company Number: CA-TEVA-2021-CA-1882705

PATIENT
  Age: 79 Year
  Sex: Male

DRUGS (12)
  1. FUROSEMIDE. [Concomitant]
     Active Substance: FUROSEMIDE
  2. ENALAPRILAT. [Concomitant]
     Active Substance: ENALAPRILAT
  3. BISOPROLOL [Concomitant]
     Active Substance: BISOPROLOL
  4. EUROFER [FERROUS SULFATE] [Concomitant]
  5. INSULIN [Concomitant]
     Active Substance: INSULIN NOS
  6. DILTIAZEM. [Concomitant]
     Active Substance: DILTIAZEM
  7. ERGOCALCIFEROL. [Concomitant]
     Active Substance: ERGOCALCIFEROL
  8. SYNTHROID [Concomitant]
     Active Substance: LEVOTHYROXINE SODIUM
  9. LANTUS [Concomitant]
     Active Substance: INSULIN GLARGINE
  10. XARELTO [Concomitant]
     Active Substance: RIVAROXABAN
  11. SILDENAFIL CITRATE. [Suspect]
     Active Substance: SILDENAFIL CITRATE
     Indication: PULMONARY HYPERTENSION
     Dosage: 60 MILLIGRAM DAILY;
     Route: 048
  12. LIPITOR [Concomitant]
     Active Substance: ATORVASTATIN CALCIUM

REACTIONS (2)
  - Product dose omission issue [Unknown]
  - Haemoglobin decreased [Unknown]
